FAERS Safety Report 8296639-6 (Version None)
Quarter: 2012Q2

REPORT INFORMATION
  Report Type: 
  Country: None (occurrence: None)
  Receive Date: 20120418
  Receipt Date: 20120418
  Transmission Date: 20120825
  Serious: Yes (Other)
  Sender: FDA-Public Use
  Company Number: None

PATIENT
  Age: 35 Year
  Sex: Female
  Weight: 96.615 kg

DRUGS (1)
  1. MIRENA [Suspect]
     Dates: start: 20080810, end: 20100110

REACTIONS (11)
  - DEPRESSION [None]
  - FATIGUE [None]
  - WEIGHT INCREASED [None]
  - OVARIAN FAILURE [None]
  - BACK PAIN [None]
  - INFERTILITY FEMALE [None]
  - NIGHT SWEATS [None]
  - NAUSEA [None]
  - MOOD SWINGS [None]
  - HEADACHE [None]
  - LIBIDO DECREASED [None]
